FAERS Safety Report 6671543-5 (Version None)
Quarter: 2010Q2

REPORT INFORMATION
  Report Type: 
  Country: None (occurrence: None)
  Receive Date: 20100407
  Receipt Date: 20100329
  Transmission Date: 20101027
  Serious: Yes (Death, Hospitalization)
  Sender: FDA-Public Use
  Company Number: NZ-BRISTOL-MYERS SQUIBB COMPANY-15039480

PATIENT
  Age: 85 Year
  Sex: Male

DRUGS (2)
  1. WARFARIN SODIUM [Suspect]
     Indication: ATRIAL FIBRILLATION
  2. LOW MOLECULAR WEIGHT HEPARINS [Suspect]
     Indication: PULMONARY EMBOLISM

REACTIONS (3)
  - CIRCULATORY COLLAPSE [None]
  - HAEMATOMA [None]
  - PULMONARY EMBOLISM [None]
